FAERS Safety Report 5368365-4 (Version None)
Quarter: 2007Q2

REPORT INFORMATION
  Report Type: 
  Country: None (occurrence: None)
  Receive Date: 20070622
  Receipt Date: 20070622
  Transmission Date: 20071010
  Serious: Yes (Hospitalization)
  Sender: FDA-Public Use
  Company Number: None

PATIENT
  Sex: Female
  Weight: 81.2 kg

DRUGS (3)
  1. CYTARABINE [Suspect]
  2. CELEXA [Concomitant]
  3. .. [Concomitant]

REACTIONS (13)
  - ACUTE MYELOID LEUKAEMIA [None]
  - DEHYDRATION [None]
  - DEMYELINATION [None]
  - DRUG TOXICITY [None]
  - DRY MOUTH [None]
  - GAIT DISTURBANCE [None]
  - HALLUCINATION [None]
  - NAUSEA [None]
  - NUCLEAR MAGNETIC RESONANCE IMAGING BRAIN ABNORMAL [None]
  - NYSTAGMUS [None]
  - ORAL INTAKE REDUCED [None]
  - VERTIGO [None]
  - WEIGHT DECREASED [None]
